APPROVED DRUG PRODUCT: VECURONIUM BROMIDE
Active Ingredient: VECURONIUM BROMIDE
Strength: 10MG/VIAL
Dosage Form/Route: INJECTABLE;INJECTION
Application: A079001 | Product #001 | TE Code: AP
Applicant: SUN PHARMACEUTICAL INDUSTRIES LTD
Approved: Jun 17, 2009 | RLD: No | RS: Yes | Type: RX